FAERS Safety Report 7372577-8 (Version None)
Quarter: 2011Q1

REPORT INFORMATION
  Report Type: 
  Country: None (occurrence: None)
  Receive Date: 20110324
  Receipt Date: 20110311
  Transmission Date: 20110831
  Serious: Yes (Other)
  Sender: FDA-Public Use
  Company Number: GB-MERCK-1103GBR00023B1

PATIENT
  Age: 0 Day
  Sex: Female
  Weight: 1 kg

DRUGS (5)
  1. NEVIRAPINE [Concomitant]
     Route: 064
     Dates: start: 20110218, end: 20110219
  2. ATAZANAVIR SULFATE [Concomitant]
     Route: 064
     Dates: start: 20101207
  3. RITONAVIR [Concomitant]
     Route: 064
     Dates: start: 20101207
  4. EMTRICITABINE AND TENOFOVIR DISOPROXIL FUMARATE [Concomitant]
     Route: 064
     Dates: start: 20101207
  5. ISENTRESS [Suspect]
     Route: 064
     Dates: start: 20110218, end: 20110219

REACTIONS (3)
  - SMALL FOR DATES BABY [None]
  - DRUG EXPOSURE DURING PREGNANCY [None]
  - PREMATURE BABY [None]
